FAERS Safety Report 11782680 (Version 2)
Quarter: 2015Q4

REPORT INFORMATION
  Report Type: Spontaneous
  Country: US (occurrence: US)
  Receive Date: 20151127
  Receipt Date: 20151222
  Transmission Date: 20160305
  Serious: Yes (Hospitalization, Other)
  Sender: FDA-Public Use
  Company Number: US-AMGEN-USASP2015124604

PATIENT
  Age: 62 Year
  Sex: Female
  Weight: 66.21 kg

DRUGS (6)
  1. PROLIA [Suspect]
     Active Substance: DENOSUMAB
     Indication: OSTEOPOROSIS POSTMENOPAUSAL
     Dosage: 60 MG, Q6MO
     Route: 058
     Dates: start: 20120915
  2. TACROLIMUS. [Concomitant]
     Active Substance: TACROLIMUS
     Dosage: 0.5 (4 PILL ), UNK
     Dates: start: 201510
  3. FLUDARABIN [Concomitant]
     Active Substance: FLUDARABINE PHOSPHATE
     Dosage: (1 HR FOR 5 DAYS)UNK
     Dates: start: 20150926, end: 20150930
  4. ACYCLOVIR                          /00587301/ [Concomitant]
     Active Substance: ACYCLOVIR
     Dosage: 800 UNK, BID
     Dates: start: 201510
  5. BUSULFAN [Concomitant]
     Active Substance: BUSULFAN
     Dosage: (2DAYS)UNK
     Dates: start: 20150926, end: 20150927
  6. BACTRIM [Concomitant]
     Active Substance: SULFAMETHOXAZOLE\TRIMETHOPRIM
     Dosage: 400 UNK, BID
     Dates: start: 201511

REACTIONS (1)
  - Acute myeloid leukaemia [Unknown]

NARRATIVE: CASE EVENT DATE: 20150621
